FAERS Safety Report 9564485 (Version 3)
Quarter: 2013Q4

REPORT INFORMATION
  Report Type: Spontaneous
  Country: JP (occurrence: JP)
  Receive Date: 20130930
  Receipt Date: 20131014
  Transmission Date: 20140711
  Serious: Yes (Other)
  Sender: FDA-Public Use
  Company Number: JP-AMGEN-JPNSP2013063203

PATIENT
  Age: 76 Year
  Sex: Female

DRUGS (7)
  1. RANMARK [Suspect]
     Indication: METASTASES TO BONE
     Dosage: 120 MG, UNK
     Route: 058
     Dates: start: 20130823, end: 20130823
  2. LOXONIN [Suspect]
     Indication: ANALGESIC THERAPY
     Dosage: 60 MG, TID
     Route: 048
     Dates: start: 20130817, end: 20130830
  3. AMLODIPINE [Concomitant]
     Dosage: UNKNOWN
     Route: 065
  4. PANTOSIN [Concomitant]
     Dosage: UNK
     Route: 065
  5. MAGMITT [Concomitant]
     Dosage: UNK
     Route: 065
  6. BFLUID [Concomitant]
     Dosage: UNK
     Route: 065
  7. CALCICOL [Concomitant]
     Dosage: 1 DF, QD
     Route: 042
     Dates: start: 20130826, end: 20130827

REACTIONS (2)
  - Renal impairment [Not Recovered/Not Resolved]
  - Hypocalcaemia [Not Recovered/Not Resolved]
